FAERS Safety Report 14617665 (Version 2)
Quarter: 2018Q2

REPORT INFORMATION
  Report Type: Report from Study
  Country: CO (occurrence: CO)
  Receive Date: 20180309
  Receipt Date: 20180427
  Transmission Date: 20180711
  Serious: Yes (Hospitalization, Other)
  Sender: FDA-Public Use
  Company Number: CO-AMGEN-COLSL2018004761

PATIENT
  Age: 22 Year
  Sex: Male

DRUGS (3)
  1. XGEVA [Suspect]
     Active Substance: DENOSUMAB
     Indication: BONE DISORDER
     Dosage: 120 MG, QWK
     Route: 058
     Dates: start: 20171110
  2. XGEVA [Suspect]
     Active Substance: DENOSUMAB
     Indication: BONE GIANT CELL TUMOUR
  3. XGEVA [Suspect]
     Active Substance: DENOSUMAB
     Indication: METASTASES TO BONE
     Dosage: QMO
     Route: 058
     Dates: start: 20161110

REACTIONS (3)
  - Joint dislocation postoperative [Recovered/Resolved]
  - Shoulder arthroplasty [Recovering/Resolving]
  - Tumour excision [Not Recovered/Not Resolved]

NARRATIVE: CASE EVENT DATE: 20180108
